FAERS Safety Report 24714096 (Version 3)
Quarter: 2025Q2

REPORT INFORMATION
  Report Type: Spontaneous
  Country: JP (occurrence: JP)
  Receive Date: 20241209
  Receipt Date: 20250620
  Transmission Date: 20250717
  Serious: Yes (Death)
  Sender: ALEXION PHARMACEUTICALS
  Company Number: JP-ASTRAZENECA-240138148_032810_P_1

PATIENT
  Age: 65 Year
  Weight: 56 kg

DRUGS (6)
  1. BREZTRI [Suspect]
     Active Substance: BUDESONIDE\FORMOTEROL\GLYCOPYRROLATE
     Indication: Emphysema
     Dosage: DOSE UNKNOWN
  2. BREZTRI [Suspect]
     Active Substance: BUDESONIDE\FORMOTEROL\GLYCOPYRROLATE
     Indication: Chronic obstructive pulmonary disease
  3. CARBOCYSTEINE [Concomitant]
     Active Substance: CARBOCYSTEINE
     Indication: Chronic obstructive pulmonary disease
  4. CARBOCYSTEINE [Concomitant]
     Active Substance: CARBOCYSTEINE
     Dosage: 500 MILLIGRAM
  5. BROTIZOLAM [Concomitant]
     Active Substance: BROTIZOLAM
     Indication: Chronic obstructive pulmonary disease
  6. BROTIZOLAM [Concomitant]
     Active Substance: BROTIZOLAM
     Dosage: .25 MILLIGRAM

REACTIONS (1)
  - Cardiac death [Fatal]
